FAERS Safety Report 19585615 (Version 2)
Quarter: 2021Q3

REPORT INFORMATION
  Report Type: Report from Study
  Country: BR (occurrence: BR)
  Receive Date: 20210720
  Receipt Date: 20210803
  Transmission Date: 20211014
  Serious: Yes (Other)
  Sender: FDA-Public Use
  Company Number: NVSC2021BR156967

PATIENT
  Sex: Female

DRUGS (1)
  1. ENTRESTO [Suspect]
     Active Substance: SACUBITRIL\VALSARTAN
     Indication: CARDIAC DISORDER
     Dosage: 29 MG 51 MG, BID
     Route: 065

REACTIONS (4)
  - Deafness transitory [Unknown]
  - Gait inability [Unknown]
  - Product use in unapproved indication [Unknown]
  - Deafness [Unknown]
